FAERS Safety Report 9117047 (Version 1)
Quarter: 2013Q1

REPORT INFORMATION
  Report Type: Spontaneous
  Country: AU (occurrence: AU)
  Receive Date: 20130208
  Receipt Date: 20130208
  Transmission Date: 20140127
  Serious: Yes (Death)
  Sender: FDA-Public Use
  Company Number: AU-ASTRAZENECA-2013SE07426

PATIENT
  Age: 69 Year
  Sex: Male

DRUGS (1)
  1. ZOLADEX IMPLANT [Suspect]
     Indication: PROSTATE CANCER
     Route: 058
     Dates: start: 20060701

REACTIONS (1)
  - Death [Fatal]
